FAERS Safety Report 14965197 (Version 1)
Quarter: 2018Q2

REPORT INFORMATION
  Report Type: Spontaneous
  Country: JP (occurrence: JP)
  Receive Date: 20180601
  Receipt Date: 20180601
  Transmission Date: 20180711
  Serious: Yes (Death, Hospitalization, Other)
  Sender: FDA-Public Use
  Company Number: PHBS1998JP00880

PATIENT
  Age: 7 Year
  Sex: Male
  Weight: 27.5 kg

DRUGS (7)
  1. SANDIMMUN (CICLOSPORIN) [Suspect]
     Active Substance: CYCLOSPORINE
     Indication: BONE MARROW TRANSPLANT
     Dosage: 2.5 MG/KG, QD
     Route: 042
     Dates: start: 19980924, end: 19981018
  2. SANDIMMUN (CICLOSPORIN) [Suspect]
     Active Substance: CYCLOSPORINE
     Indication: IMMUNOSUPPRESSION
  3. ZOVIRAX [Concomitant]
     Active Substance: ACYCLOVIR
     Indication: PRODUCT USED FOR UNKNOWN INDICATION
     Dosage: UNK
     Route: 065
     Dates: start: 19980925, end: 19981023
  4. SANDIMMUN (CICLOSPORIN) [Suspect]
     Active Substance: CYCLOSPORINE
     Indication: CORD BLOOD TRANSPLANT THERAPY
  5. POLYMYXIN B. [Concomitant]
     Active Substance: POLYMYXIN B
     Indication: PRODUCT USED FOR UNKNOWN INDICATION
     Route: 065
     Dates: start: 19980913
  6. DIFLUCAN [Concomitant]
     Active Substance: FLUCONAZOLE
     Indication: PRODUCT USED FOR UNKNOWN INDICATION
     Route: 065
     Dates: start: 19980919, end: 19981023
  7. METHYLPREDNISOLONE. [Concomitant]
     Active Substance: METHYLPREDNISOLONE
     Indication: PRODUCT USED FOR UNKNOWN INDICATION
     Route: 065
     Dates: start: 19980930

REACTIONS (8)
  - Hepatic failure [Fatal]
  - Lung infiltration [Fatal]
  - Eye movement disorder [Unknown]
  - Diffuse large B-cell lymphoma [Fatal]
  - Altered state of consciousness [Unknown]
  - Seizure [Unknown]
  - Encephalopathy [Recovered/Resolved]
  - Apnoea [Unknown]

NARRATIVE: CASE EVENT DATE: 19981018
